FAERS Safety Report 17462499 (Version 4)
Quarter: 2020Q2

REPORT INFORMATION
  Report Type: Report from Study
  Country: US (occurrence: US)
  Receive Date: 20200226
  Receipt Date: 20200617
  Transmission Date: 20200713
  Serious: No
  Sender: FDA-Public Use
  Company Number: NVSC2020US054550

PATIENT
  Age: 37 Year
  Sex: Female

DRUGS (2)
  1. COSENTYX [Suspect]
     Active Substance: SECUKINUMAB
     Indication: PSORIASIS
     Dosage: 300 MG, QMO
     Route: 003
     Dates: start: 202001
  2. COSENTYX [Suspect]
     Active Substance: SECUKINUMAB
     Indication: PSORIASIS

REACTIONS (2)
  - Pain [Unknown]
  - Scar [Not Recovered/Not Resolved]

NARRATIVE: CASE EVENT DATE: 202001
